FAERS Safety Report 15206070 (Version 3)
Quarter: 2018Q3

REPORT INFORMATION
  Report Type: Spontaneous
  Country: US (occurrence: US)
  Receive Date: 20180727
  Receipt Date: 20180823
  Transmission Date: 20181010
  Serious: Yes (Hospitalization)
  Sender: FDA-Public Use
  Company Number: US-BIOGEN-2018BI00613875

PATIENT
  Age: 64 Year
  Sex: Female

DRUGS (2)
  1. PLEGRIDY [Suspect]
     Active Substance: PEGINTERFERON BETA-1A
     Indication: MULTIPLE SCLEROSIS
     Route: 058
  2. PLEGRIDY [Suspect]
     Active Substance: PEGINTERFERON BETA-1A
     Route: 058
     Dates: start: 20151110

REACTIONS (3)
  - Drug dose omission [Not Recovered/Not Resolved]
  - Thrombosis [Recovered/Resolved]
  - Device malfunction [Not Recovered/Not Resolved]

NARRATIVE: CASE EVENT DATE: 20180716
